FAERS Safety Report 11720287 (Version 1)
Quarter: 2015Q4

REPORT INFORMATION
  Report Type: Spontaneous
  Country: CH (occurrence: CH)
  Receive Date: 20151110
  Receipt Date: 20151110
  Transmission Date: 20160304
  Serious: Yes (Other)
  Sender: FDA-Public Use
  Company Number: CH-ASTRAZENECA-2015SF07017

PATIENT
  Age: 0 Year
  Sex: Female
  Weight: 2.8 kg

DRUGS (9)
  1. SEROQUEL [Suspect]
     Active Substance: QUETIAPINE FUMARATE
     Indication: DEPRESSION
     Route: 064
     Dates: start: 2014
  2. SERTRALINE [Suspect]
     Active Substance: SERTRALINE HYDROCHLORIDE
     Indication: DEPRESSION
     Route: 064
     Dates: start: 2014
  3. VENTOLIN [Suspect]
     Active Substance: ALBUTEROL SULFATE
     Indication: ASTHMA
     Dosage: 4X/DAY MAX IN RESERVE IN CASE OF ASTHMA
     Route: 064
     Dates: start: 2014
  4. OMEPRAZOL [Suspect]
     Active Substance: OMEPRAZOLE
     Route: 064
     Dates: start: 2014
  5. ADALAT CC [Suspect]
     Active Substance: NIFEDIPINE
     Route: 064
     Dates: start: 2015
  6. MALTOFER [Concomitant]
     Active Substance: IRON POLYMALTOSE
     Route: 064
  7. SEROQUEL [Suspect]
     Active Substance: QUETIAPINE FUMARATE
     Indication: DEPRESSION
     Route: 064
     Dates: start: 2014
  8. ELEVIT PRONATAL [Concomitant]
     Dosage: EVERY DAY
     Route: 064
  9. MAGNESIOCARD [Concomitant]
     Active Substance: MAGNESIUM ASPARTATE HYDROCHLORIDE
     Dosage: THREE TIMES A DAY
     Route: 064

REACTIONS (6)
  - Foetal growth restriction [Recovered/Resolved]
  - Anaemia neonatal [Unknown]
  - Neonatal respiratory distress syndrome [Recovered/Resolved]
  - Atrial septal defect [Unknown]
  - Cardiac murmur [Unknown]
  - Hypoglycaemia neonatal [Recovered/Resolved]

NARRATIVE: CASE EVENT DATE: 2015
